FAERS Safety Report 7607158 (Version 2)
Quarter: 2013Q2

REPORT INFORMATION
  Report Type: Spontaneous
  Country: US (occurrence: US)
  Receive Date: 20100927
  Receipt Date: 20130618
  Transmission Date: 20140414
  Serious: Yes (Hospitalization, Other)
  Sender: FDA-Public Use
  Company Number: PHEH2010US03843

PATIENT
  Sex: Female

DRUGS (3)
  1. AREDIA [Suspect]
     Dates: start: 20000307, end: 2002
  2. AROMASIN [Concomitant]
  3. TAMOXIFEN [Concomitant]

REACTIONS (6)
  - Diabetes mellitus [Unknown]
  - Abscess limb [Unknown]
  - Anaemia [Unknown]
  - Malignant pleural effusion [Unknown]
  - Vaginal haemorrhage [Unknown]
  - Sciatica [Unknown]
